FAERS Safety Report 22029271 (Version 1)
Quarter: 2023Q1

REPORT INFORMATION
  Report Type: Spontaneous
  Country: US (occurrence: None)
  Receive Date: 20230223
  Receipt Date: 20230223
  Transmission Date: 20230418
  Serious: No
  Sender: FDA-Public Use
  Company Number: 2023A025778

PATIENT
  Age: 54 Year
  Sex: Male

DRUGS (10)
  1. FARXIGA [Suspect]
     Active Substance: DAPAGLIFLOZIN PROPANEDIOL
     Route: 048
  2. ROSUVASTATIN [Suspect]
     Active Substance: ROSUVASTATIN
     Route: 048
  3. TARPEYO [Suspect]
     Active Substance: BUDESONIDE
     Indication: IgA nephropathy
     Route: 048
     Dates: start: 20220618
  4. TARPEYO [Suspect]
     Active Substance: BUDESONIDE
     Indication: Haematuria
     Route: 048
     Dates: start: 20220618
  5. TARPEYO [Suspect]
     Active Substance: BUDESONIDE
     Indication: Ill-defined disorder
     Route: 048
     Dates: start: 20220618
  6. OXYCODONE [Concomitant]
     Active Substance: OXYCODONE
     Indication: Hypersensitivity
  7. FISH OIL [Concomitant]
     Active Substance: FISH OIL
  8. LOSARTAN [Concomitant]
     Active Substance: LOSARTAN
  9. KERENDIA [Concomitant]
     Active Substance: FINERENONE
  10. DULOXETINE [Concomitant]
     Active Substance: DULOXETINE
     Indication: Arthritis

REACTIONS (3)
  - Acne [Not Recovered/Not Resolved]
  - Rash [Unknown]
  - Hypersensitivity [Unknown]

NARRATIVE: CASE EVENT DATE: 20220701
